FAERS Safety Report 20752919 (Version 1)
Quarter: 2022Q2

REPORT INFORMATION
  Report Type: Spontaneous
  Country: US (occurrence: None)
  Receive Date: 20220426
  Receipt Date: 20220426
  Transmission Date: 20220720
  Serious: No
  Sender: FDA-Public Use
  Company Number: US-ROCHE-2923421

PATIENT
  Age: 73 Year
  Sex: Female
  Weight: 55.388 kg

DRUGS (15)
  1. ESBRIET [Suspect]
     Active Substance: PIRFENIDONE
     Indication: Idiopathic pulmonary fibrosis
     Dosage: ONGOING -NO, PILLS
     Route: 048
     Dates: start: 20210830
  2. ESBRIET [Suspect]
     Active Substance: PIRFENIDONE
     Dosage: ONGOING -YES
     Route: 048
     Dates: start: 20210925
  3. ESBRIET [Suspect]
     Active Substance: PIRFENIDONE
     Dosage: 3 TABLETS, ONGOING-YES
     Route: 048
     Dates: start: 202108
  4. MYLANTA [Concomitant]
     Active Substance: ALUMINUM HYDROXIDE\DIMETHICONE\MAGNESIUM HYDROXIDE
     Dosage: 1 TABLESPOON IN THE EVENING BEFORE BED, (340MGS/7MGOF SODIUM)
  5. ZANTAC [Concomitant]
     Active Substance: RANITIDINE HYDROCHLORIDE
  6. OMEPRAZOLE [Concomitant]
     Active Substance: OMEPRAZOLE
     Dosage: 20 MGS ONCE A DAY BY MOUTH FOR HER GERD.
  7. SIMVASTATIN [Concomitant]
     Active Substance: SIMVASTATIN
  8. TRIAMTERENE AND HYDROCHLOROTHIAZIDE [Concomitant]
     Active Substance: HYDROCHLOROTHIAZIDE\TRIAMTERENE
  9. RECLAST [Concomitant]
     Active Substance: ZOLEDRONIC ACID
  10. MUCINEX [Concomitant]
     Active Substance: GUAIFENESIN
  11. ASPIRIN [Concomitant]
     Active Substance: ASPIRIN
  12. VITAMINS [Concomitant]
     Active Substance: VITAMINS
  13. VITAMIN D [Concomitant]
     Active Substance: VITAMIN D NOS
  14. KLOR-CON [Concomitant]
     Active Substance: POTASSIUM CHLORIDE
  15. PAXIL [Concomitant]
     Active Substance: PAROXETINE HYDROCHLORIDE

REACTIONS (4)
  - Nausea [Not Recovered/Not Resolved]
  - Fatigue [Not Recovered/Not Resolved]
  - Decreased appetite [Not Recovered/Not Resolved]
  - Intentional product misuse [Unknown]

NARRATIVE: CASE EVENT DATE: 20210914
